FAERS Safety Report 18073907 (Version 1)
Quarter: 2020Q3

REPORT INFORMATION
  Report Type: Spontaneous
  Country: FR (occurrence: FR)
  Receive Date: 20200727
  Receipt Date: 20200727
  Transmission Date: 20201103
  Serious: Yes (Death)
  Sender: FDA-Public Use
  Company Number: FR-PFIZER INC-2020282948

PATIENT
  Age: 98 Year
  Sex: Female
  Weight: 50 kg

DRUGS (7)
  1. BUMETANIDE. [Suspect]
     Active Substance: BUMETANIDE
     Indication: CARDIAC FAILURE
     Dosage: 5 MG, 1X/DAY
     Route: 048
  2. MIRTAZAPINE. [Suspect]
     Active Substance: MIRTAZAPINE
     Indication: DEPRESSION
     Dosage: 15 MG, 1X/DAY
     Route: 048
  3. SPIRONOLACTONE. [Suspect]
     Active Substance: SPIRONOLACTONE
     Indication: CARDIAC FAILURE
     Dosage: 25 MG, 1X/DAY
     Route: 048
  4. PARACETAMOL [Concomitant]
     Active Substance: ACETAMINOPHEN
     Route: 048
  5. CARBIMAZOLE [Concomitant]
     Active Substance: CARBIMAZOLE
     Route: 048
  6. HEMIGOXINE NATIVELLE [Suspect]
     Active Substance: DIGOXIN
     Indication: ATRIAL FIBRILLATION
     Dosage: 1 TABLET, 1X/DAY
     Route: 048
     Dates: end: 20200617
  7. PREVISCAN [FLUINDIONE] [Concomitant]
     Active Substance: FLUINDIONE
     Dosage: 0.75 DF, 1X/DAY
     Route: 048

REACTIONS (3)
  - Cardiac failure [Fatal]
  - Fall [Fatal]
  - General physical health deterioration [Fatal]

NARRATIVE: CASE EVENT DATE: 20200530
